FAERS Safety Report 7474317-0 (Version None)
Quarter: 2011Q2

REPORT INFORMATION
  Report Type: 
  Country: None (occurrence: None)
  Receive Date: 20110511
  Receipt Date: 20110314
  Transmission Date: 20111010
  Serious: Yes (Other)
  Sender: FDA-Public Use
  Company Number: US-AMGEN-USASP2011002530

PATIENT
  Age: 56 Year
  Sex: Female
  Weight: 63.492 kg

DRUGS (1)
  1. ENBREL [Suspect]
     Indication: RHEUMATOID ARTHRITIS
     Dosage: 50 MG, QWK
     Route: 058
     Dates: start: 20080301, end: 20101104

REACTIONS (4)
  - PRURITUS [None]
  - URTICARIA [None]
  - SWOLLEN TONGUE [None]
  - PHARYNGEAL OEDEMA [None]
